FAERS Safety Report 18283131 (Version 3)
Quarter: 2020Q4

REPORT INFORMATION
  Report Type: Spontaneous
  Country: CH (occurrence: CH)
  Receive Date: 20200918
  Receipt Date: 20201215
  Transmission Date: 20210113
  Serious: Yes (Hospitalization, Other)
  Sender: FDA-Public Use
  Company Number: CH-PFIZER INC-2020357111

PATIENT
  Sex: Female

DRUGS (6)
  1. XYZAL [Suspect]
     Active Substance: LEVOCETIRIZINE DIHYDROCHLORIDE
     Dosage: 4 MG, DAILY
     Dates: start: 202010
  2. TEMESTA (LORAZEPAM) [Suspect]
     Active Substance: LORAZEPAM
     Dosage: 1 MG, 1X/DAY (FOR 1/2 YEAR)
     Dates: end: 201711
  3. XYZAL [Suspect]
     Active Substance: LEVOCETIRIZINE DIHYDROCHLORIDE
     Dosage: 4 MG, 1X/DAY
     Dates: end: 201710
  4. CIPRALEX [Suspect]
     Active Substance: ESCITALOPRAM OXALATE
     Dosage: 20 MG, 1X/DAY
     Dates: end: 2017
  5. FLUOXETINE [FLUOXETINE HYDROCHLORIDE] [Suspect]
     Active Substance: FLUOXETINE HYDROCHLORIDE
     Dosage: 20 MG, 1X/DAY
     Dates: start: 201710, end: 201710
  6. TEMESTA (LORAZEPAM) [Suspect]
     Active Substance: LORAZEPAM
     Dosage: 4 MG, DAILY
     Dates: end: 201711

REACTIONS (14)
  - Hyperhidrosis [Unknown]
  - Diplopia [Recovering/Resolving]
  - Muscle twitching [Recovering/Resolving]
  - Pallor [Unknown]
  - Pulse abnormal [Unknown]
  - Hallucination [Recovered/Resolved]
  - Illusion [Unknown]
  - Sedation [Recovering/Resolving]
  - Nausea [Unknown]
  - Cardiovascular disorder [Unknown]
  - Chills [Unknown]
  - Feeling abnormal [Recovered/Resolved]
  - Eye disorder [Unknown]
  - Haemodynamic instability [Recovering/Resolving]

NARRATIVE: CASE EVENT DATE: 20170903
